FAERS Safety Report 20090324 (Version 4)
Quarter: 2022Q1

REPORT INFORMATION
  Report Type: Report from Study
  Country: CN (occurrence: CN)
  Receive Date: 20211119
  Receipt Date: 20220304
  Transmission Date: 20220423
  Serious: Yes (Hospitalization)
  Sender: FDA-Public Use
  Company Number: CN-ASTELLAS-2021US041958

PATIENT
  Age: 63 Year
  Sex: Female
  Weight: 48 kg

DRUGS (19)
  1. ENFORTUMAB VEDOTIN [Suspect]
     Active Substance: ENFORTUMAB VEDOTIN
     Indication: Transitional cell carcinoma
     Dosage: 0.75 MG/KG, EVERY 4 WEEKS (DAY 1, 8 AND 15)
     Route: 042
     Dates: start: 20210910, end: 20210919
  2. ENFORTUMAB VEDOTIN [Suspect]
     Active Substance: ENFORTUMAB VEDOTIN
     Dosage: 1.25 MG/KG, EVERY 4 WEEKS (DAY 1, 8 AND 15)
     Route: 042
     Dates: start: 20210927, end: 20211101
  3. ENFORTUMAB VEDOTIN [Suspect]
     Active Substance: ENFORTUMAB VEDOTIN
     Dosage: 0.75 MG/KG, EVERY 4 WEEKS (DAY 1, 8 AND 15)
     Route: 042
     Dates: start: 20211122, end: 20211206
  4. ENFORTUMAB VEDOTIN [Suspect]
     Active Substance: ENFORTUMAB VEDOTIN
     Dosage: 1 MG/KG, EVERY 4 WEEKS (DAY 1, 8 AND 15)
     Route: 042
     Dates: start: 20211222
  5. METHYLPREDNISOLONE SODIUM SUCCINATE [Concomitant]
     Active Substance: METHYLPREDNISOLONE SODIUM SUCCINATE
     Indication: Antiallergic therapy
     Dosage: 40 MG, OTHER (ONCE)
     Route: 065
     Dates: start: 20210910, end: 20210910
  6. LORATADINE [Concomitant]
     Active Substance: LORATADINE
     Indication: Antiallergic therapy
     Route: 065
     Dates: start: 20210910, end: 20210911
  7. LORATADINE [Concomitant]
     Active Substance: LORATADINE
     Indication: Pruritus
     Route: 065
     Dates: start: 20211011, end: 20211122
  8. Oryz-Aspergillus enzyme and pancreatin [Concomitant]
     Indication: Prophylaxis
     Dosage: UNK UNK, THRICE DAILY
     Route: 065
     Dates: start: 20210910, end: 20210911
  9. LACTULOSE [Concomitant]
     Active Substance: LACTULOSE
     Indication: Constipation prophylaxis
     Dosage: 30 ML, OTHER (EVERY NIGHT) AS NEEDED
     Route: 048
     Dates: start: 20210910
  10. MEGESTROL ACETATE [Concomitant]
     Active Substance: MEGESTROL ACETATE
     Indication: Increased appetite
     Dosage: 0.16 G, OTHER (EVERY NIGHT)
     Route: 065
     Dates: start: 20210910, end: 20210911
  11. LEUCOGEN [Concomitant]
     Active Substance: LEUCOGEN
     Indication: Anaemia
     Route: 065
     Dates: start: 20210922, end: 20210926
  12. Iron Polysaccharide complex [Concomitant]
     Indication: Anaemia
     Dosage: 0.15 G, TWICE DAILY
     Route: 065
     Dates: start: 20210926, end: 20211129
  13. Iron Polysaccharide complex [Concomitant]
     Indication: Anaemia
  14. OXYCODONE HYDROCHLORIDE [Concomitant]
     Active Substance: OXYCODONE HYDROCHLORIDE
     Indication: Cancer pain
     Route: 065
     Dates: start: 202102, end: 20211115
  15. MORPHINE HYDROCHLORIDE [Concomitant]
     Active Substance: MORPHINE HYDROCHLORIDE
     Indication: Cancer pain
     Route: 065
     Dates: start: 2021, end: 20211115
  16. GABAPENTIN [Concomitant]
     Active Substance: GABAPENTIN
     Indication: Cancer pain
     Dosage: 0.3 G, THRICE DAILY
     Route: 065
     Dates: start: 2020, end: 20211130
  17. UREA [Concomitant]
     Active Substance: UREA
     Indication: Pruritus
     Dosage: 1 CM, THRICE DAILY
     Route: 065
     Dates: start: 20211011, end: 20211101
  18. GRANULOCYTE COLONY-STIMULATING FACTOR NOS [Concomitant]
     Active Substance: GRANULOCYTE COLONY-STIMULATING FACTOR NOS
     Indication: Neutrophil count decreased
     Dosage: 0.3 ML, OTHER (ONCE)
     Route: 065
     Dates: start: 20211006, end: 20211006
  19. PURGE [Concomitant]
     Indication: Constipation
     Route: 065
     Dates: start: 20211022, end: 20211022

REACTIONS (1)
  - Acquired epidermolysis bullosa [Recovered/Resolved]

NARRATIVE: CASE EVENT DATE: 20211101
